FAERS Safety Report 14555218 (Version 1)
Quarter: 2018Q1

REPORT INFORMATION
  Report Type: Spontaneous
  Country: US (occurrence: US)
  Receive Date: 20180219
  Receipt Date: 20180219
  Transmission Date: 20180509
  Serious: Yes (Disabling)
  Sender: FDA-Public Use
  Company Number: None

PATIENT
  Sex: Female
  Weight: 81 kg

DRUGS (1)
  1. CIPROFLOXACIN. [Suspect]
     Active Substance: CIPROFLOXACIN
     Indication: URINARY TRACT INFECTION
     Dosage: ?          QUANTITY:1 CAPSULE(S);?
     Route: 048
     Dates: start: 20180129, end: 20180130

REACTIONS (8)
  - Tremor [None]
  - Pruritus [None]
  - Pain [None]
  - Anxiety [None]
  - Arthralgia [None]
  - Chest pain [None]
  - Paraesthesia [None]
  - Pain in extremity [None]

NARRATIVE: CASE EVENT DATE: 20180129
